FAERS Safety Report 8028234 (Version 4)
Quarter: 2015Q3

REPORT INFORMATION
  Report Type: Spontaneous
  Country: US (occurrence: US)
  Receive Date: 20110711
  Receipt Date: 20150812
  Transmission Date: 20151125
  Serious: Yes (Hospitalization, Other)
  Sender: FDA-Public Use
  Company Number: US-BAYER-2011-025742

PATIENT
  Age: 25 Year
  Sex: Female
  Weight: 74.83 kg

DRUGS (4)
  1. LORAZEPAM. [Concomitant]
     Active Substance: LORAZEPAM
     Indication: ANXIETY
  2. VITAMIN D [Concomitant]
     Active Substance: CHOLECALCIFEROL
     Dosage: 600 UNITS
     Dates: start: 20110114
  3. MIRENA [Suspect]
     Active Substance: LEVONORGESTREL
     Indication: CONTRACEPTION
     Dosage: 20 MCG/24HR, CONT
     Route: 015
     Dates: start: 20080916, end: 20110114
  4. CELEXA [Concomitant]
     Active Substance: CITALOPRAM HYDROBROMIDE
     Indication: ANXIETY

REACTIONS (20)
  - Anxiety [None]
  - Infertility female [None]
  - Loss of libido [None]
  - Scar [None]
  - Emotional distress [None]
  - Intra-abdominal haemorrhage [Recovered/Resolved]
  - Injury [Recovered/Resolved]
  - Fatigue [Recovered/Resolved]
  - Ectopic pregnancy [Recovered/Resolved]
  - Uterine perforation [Recovered/Resolved]
  - Device dislocation [Recovered/Resolved]
  - Drug ineffective [None]
  - Procedural pain [None]
  - Panic attack [None]
  - Depression [None]
  - Abdominal pain lower [Recovered/Resolved]
  - Pelvic pain [Recovered/Resolved]
  - Genital haemorrhage [None]
  - Dyspareunia [None]
  - Device failure [None]

NARRATIVE: CASE EVENT DATE: 2008
